FAERS Safety Report 6414880-1 (Version None)
Quarter: 2009Q4

REPORT INFORMATION
  Report Type: 
  Country: None (occurrence: None)
  Receive Date: 20091026
  Receipt Date: 20091026
  Transmission Date: 20100525
  Serious: Yes (Other)
  Sender: FDA-Public Use
  Company Number: None

PATIENT
  Age: 69 Year
  Sex: Male
  Weight: 63.5036 kg

DRUGS (1)
  1. DOXAZOSIN MESYLATE 1 MG APOTEX [Suspect]
     Indication: BENIGN PROSTATIC HYPERPLASIA
     Dosage: 1 MG ONCE DAILY PO
     Route: 048
     Dates: start: 20090701, end: 20091015

REACTIONS (6)
  - ENURESIS [None]
  - MICTURITION URGENCY [None]
  - PRODUCT CONTAMINATION [None]
  - PRODUCT LABEL ISSUE [None]
  - PRODUCT QUALITY ISSUE [None]
  - PRODUCT SUBSTITUTION ISSUE [None]
